FAERS Safety Report 11066092 (Version 1)
Quarter: 2015Q2

REPORT INFORMATION
  Report Type: Spontaneous
  Country: GB (occurrence: None)
  Receive Date: 20150423
  Receipt Date: 20150423
  Transmission Date: 20150821
  Serious: Yes (Other)
  Sender: FDA-Public Use
  Company Number: 2015-4447

PATIENT
  Sex: Male

DRUGS (2)
  1. DYSPORT [Suspect]
     Active Substance: ABOBOTULINUMTOXINA
     Indication: PRODUCT USE ISSUE
     Dosage: NOT REPORTED (1 IN 1 CYCLE(S)), INTRAVESICAL
     Route: 043
  2. DYSPORT [Suspect]
     Active Substance: ABOBOTULINUMTOXINA
     Indication: HYPERTONIC BLADDER
     Dosage: NOT REPORTED (1 IN 1 CYCLE(S)), INTRAVESICAL
     Route: 043

REACTIONS (2)
  - Off label use [None]
  - Urinary retention [None]
